FAERS Safety Report 5371902-7 (Version None)
Quarter: 2007Q2

REPORT INFORMATION
  Report Type: 
  Country: None (occurrence: None)
  Receive Date: 20070625
  Receipt Date: 20070619
  Transmission Date: 20071010
  Serious: Yes (Death, Hospitalization)
  Sender: FDA-Public Use
  Company Number: 2007BI013019

PATIENT
  Age: 64 Year
  Sex: Male

DRUGS (1)
  1. AVONEX [Suspect]
     Indication: MULTIPLE SCLEROSIS
     Dosage: 30 UG; QW; IM
     Dates: end: 20070616

REACTIONS (4)
  - BLOOD GLUCOSE DECREASED [None]
  - CYSTITIS [None]
  - PROSTATE CANCER [None]
  - PULMONARY OEDEMA [None]
